FAERS Safety Report 7008704-1 (Version None)
Quarter: 2010Q3

REPORT INFORMATION
  Report Type: 
  Country: None (occurrence: None)
  Receive Date: 20100921
  Receipt Date: 20100910
  Transmission Date: 20110219
  Serious: Yes (Other)
  Sender: FDA-Public Use
  Company Number: A-CH2010-37433

PATIENT
  Age: 85 Year
  Sex: Female
  Weight: 33 kg

DRUGS (10)
  1. TRACLEER [Suspect]
     Indication: PULMONARY ARTERIAL HYPERTENSION
     Dosage: 62.5 MG, QD, ORAL
     Route: 048
     Dates: start: 20100205, end: 20100513
  2. TRACLEER [Suspect]
     Indication: PULMONARY ARTERIAL HYPERTENSION
     Dosage: 62.5 MG, QD, ORAL
     Route: 048
     Dates: start: 20100514, end: 20100611
  3. FUROSEMIDE [Concomitant]
  4. ASPIRIN [Concomitant]
  5. SPIRONOLACTONE [Concomitant]
  6. IMIDAPRIL HYDROCHLORIDE (IMIDAPRIL HYDROCHLORIDE) [Concomitant]
  7. ATENOLOL [Concomitant]
  8. DIGOXIN [Concomitant]
  9. ECABET MONOSODIUM [Concomitant]
  10. BIFIDOBACTERIUM BIFIDUM [Concomitant]

REACTIONS (2)
  - ANAEMIA [None]
  - PANCYTOPENIA [None]
